FAERS Safety Report 16747191 (Version 1)
Quarter: 2019Q3

REPORT INFORMATION
  Report Type: Report from Study
  Country: US (occurrence: US)
  Receive Date: 20190827
  Receipt Date: 20190827
  Transmission Date: 20191005
  Serious: No
  Sender: FDA-Public Use
  Company Number: PHEH2019US035319

PATIENT
  Sex: Male

DRUGS (1)
  1. ENTRESTO [Suspect]
     Active Substance: SACUBITRIL\VALSARTAN
     Indication: CARDIAC FAILURE CONGESTIVE
     Dosage: UNK UNK, QD
     Route: 048

REACTIONS (7)
  - Eating disorder [Unknown]
  - Heart rate abnormal [Unknown]
  - Fatigue [Unknown]
  - Asthenia [Unknown]
  - Blood glucose decreased [Unknown]
  - Weight decreased [Unknown]
  - Chest discomfort [Unknown]
